FAERS Safety Report 10271652 (Version 2)
Quarter: 2014Q3

REPORT INFORMATION
  Report Type: Spontaneous
  Country: US (occurrence: US)
  Receive Date: 20140701
  Receipt Date: 20140701
  Transmission Date: 20150326
  Serious: No
  Sender: FDA-Public Use
  Company Number: US-SA-CERZ-1003035

PATIENT
  Age: 54 Year
  Sex: Female

DRUGS (1)
  1. CEREZYME [Suspect]
     Active Substance: IMIGLUCERASE
     Indication: GAUCHER^S DISEASE
     Dosage: 3200 U, Q2W DOSE:3200 UNIT(S)
     Route: 042
     Dates: start: 200611

REACTIONS (4)
  - Sciatic nerve neuropathy [Not Recovered/Not Resolved]
  - Mobility decreased [Not Recovered/Not Resolved]
  - Upper respiratory tract infection [Unknown]
  - Asthma [Unknown]
